FAERS Safety Report 5421901-1 (Version None)
Quarter: 2007Q3

REPORT INFORMATION
  Report Type: 
  Country: None (occurrence: None)
  Receive Date: 20070822
  Receipt Date: 20070817
  Transmission Date: 20080115
  Serious: Yes (Hospitalization, Other)
  Sender: FDA-Public Use
  Company Number: HQWYE044720MAY04

PATIENT
  Sex: Female
  Weight: 90.8 kg

DRUGS (9)
  1. PREMPRO [Suspect]
     Indication: MENOPAUSE
     Dosage: UNSPECIFIED
     Route: 048
     Dates: start: 19960801, end: 20020401
  2. PROVERA [Suspect]
     Indication: MENOPAUSE
     Dosage: 5 MG EVERY
     Route: 048
     Dates: start: 19950201, end: 19960701
  3. ACTOS [Concomitant]
     Indication: DIABETES MELLITUS
  4. LIPITOR [Concomitant]
     Indication: BLOOD CHOLESTEROL INCREASED
  5. VIOXX [Concomitant]
     Indication: BACK PAIN
  6. NEXIUM [Concomitant]
     Indication: GASTROOESOPHAGEAL REFLUX DISEASE
  7. SYNTHROID [Concomitant]
     Indication: HYPOTHYROIDISM
  8. PREMARIN [Suspect]
     Indication: MENOPAUSE
     Dosage: UNSPECIFIED
     Route: 048
     Dates: start: 19950201, end: 19960701
  9. GLUCOPHAGE [Concomitant]

REACTIONS (1)
  - BREAST CANCER METASTATIC [None]
